FAERS Safety Report 8607481-8 (Version None)
Quarter: 2012Q3

REPORT INFORMATION
  Report Type: 
  Country: None (occurrence: None)
  Receive Date: 20120821
  Receipt Date: 20120813
  Transmission Date: 20120928
  Serious: Yes (Disabling, Other)
  Sender: FDA-Public Use
  Company Number: US-JNJFOC-20120516183

PATIENT
  Sex: Female
  Weight: 54.43 kg

DRUGS (9)
  1. REMICADE [Suspect]
     Route: 042
     Dates: start: 20120201
  2. REMICADE [Suspect]
     Indication: RHEUMATOID ARTHRITIS
     Route: 042
     Dates: start: 20120301
  3. FOLIC ACID [Concomitant]
     Indication: RHEUMATOID ARTHRITIS
     Route: 048
     Dates: start: 20050101
  4. PREDNISONE [Concomitant]
     Indication: RHEUMATOID ARTHRITIS
     Route: 048
     Dates: start: 20050101
  5. REMICADE [Suspect]
     Route: 042
     Dates: start: 20120502, end: 20120502
  6. AMBIEN [Concomitant]
     Indication: INSOMNIA
     Route: 065
  7. REMICADE [Suspect]
     Route: 042
     Dates: start: 20120101
  8. METHOTREXATE [Concomitant]
     Indication: RHEUMATOID ARTHRITIS
     Route: 048
     Dates: start: 20050101
  9. PRILOSEC [Concomitant]
     Indication: DYSPEPSIA
     Route: 048
     Dates: start: 20111001

REACTIONS (14)
  - INSOMNIA [None]
  - ADVERSE DRUG REACTION [None]
  - DRUG INEFFECTIVE [None]
  - TREMOR [None]
  - INFUSION RELATED REACTION [None]
  - DYSPNOEA [None]
  - VOMITING [None]
  - DEPRESSION [None]
  - COUGH [None]
  - PALLOR [None]
  - RHEUMATOID ARTHRITIS [None]
  - CHEST DISCOMFORT [None]
  - DIZZINESS [None]
  - ANXIETY [None]
